FAERS Safety Report 15477763 (Version 1)
Quarter: 2018Q4

REPORT INFORMATION
  Report Type: Spontaneous
  Country: GB (occurrence: GB)
  Receive Date: 20181009
  Receipt Date: 20181009
  Transmission Date: 20190205
  Serious: Yes (Other)
  Sender: FDA-Public Use
  Company Number: GB-FERRINGPH-2018FE04467

PATIENT

DRUGS (1)
  1. PROPESS [Suspect]
     Active Substance: DINOPROSTONE
     Indication: LABOUR INDUCTION
     Route: 064
     Dates: start: 20170611, end: 20170611

REACTIONS (2)
  - Foetal heart rate deceleration abnormality [Recovered/Resolved]
  - Neonatal respiratory distress syndrome [Recovered/Resolved]
